FAERS Safety Report 20049120 (Version 2)
Quarter: 2021Q4

REPORT INFORMATION
  Report Type: Spontaneous
  Country: US (occurrence: US)
  Receive Date: 20211109
  Receipt Date: 20211125
  Transmission Date: 20220303
  Serious: Yes (Other)
  Sender: FDA-Public Use
  Company Number: US-UNITED THERAPEUTICS-UNT-2021-022578

PATIENT
  Sex: Female
  Weight: 57.596 kg

DRUGS (2)
  1. REMODULIN [Suspect]
     Active Substance: TREPROSTINIL
     Indication: Pulmonary arterial hypertension
     Dosage: UNK, CONTINUING
     Route: 058
     Dates: start: 20190121
  2. REMODULIN [Suspect]
     Active Substance: TREPROSTINIL
     Dosage: 0.0631 ?G/KG, CONTINUING
     Route: 058

REACTIONS (10)
  - Device dislocation [Unknown]
  - Incorrect dose administered [Unknown]
  - Infusion site erythema [Unknown]
  - Infusion site pain [Unknown]
  - Dyspnoea exertional [Unknown]
  - Oxygen saturation decreased [Unknown]
  - Dyspnoea [Recovering/Resolving]
  - Oedema peripheral [Unknown]
  - Fluid retention [Recovering/Resolving]
  - Infusion site reaction [Recovering/Resolving]

NARRATIVE: CASE EVENT DATE: 20210101
